FAERS Safety Report 7513655-X (Version None)
Quarter: 2011Q2

REPORT INFORMATION
  Report Type: 
  Country: None (occurrence: None)
  Receive Date: 20110531
  Receipt Date: 20110520
  Transmission Date: 20111010
  Serious: Yes (Other)
  Sender: FDA-Public Use
  Company Number: GB-BAYER-2011-045216

PATIENT
  Age: 83 Year
  Sex: Male
  Weight: 70 kg

DRUGS (2)
  1. ULTRAVIST 300 [Suspect]
     Indication: COMPUTERISED TOMOGRAM
     Dosage: 80 ML, ONCE
     Route: 042
     Dates: start: 20110506, end: 20110506
  2. ASPIRIN [Concomitant]

REACTIONS (4)
  - MALAISE [None]
  - DYSKINESIA [None]
  - HYPERTENSION [None]
  - APHASIA [None]
